FAERS Safety Report 18201677 (Version 3)
Quarter: 2020Q4

REPORT INFORMATION
  Report Type: Spontaneous
  Country: JP (occurrence: JP)
  Receive Date: 20200827
  Receipt Date: 20201030
  Transmission Date: 20210113
  Serious: Yes (Hospitalization)
  Sender: FDA-Public Use
  Company Number: JP-ASTELLAS-2020JP012428

PATIENT
  Age: 61 Year
  Sex: Female
  Weight: 58 kg

DRUGS (9)
  1. PROGRAF [Suspect]
     Active Substance: TACROLIMUS
     Indication: RHEUMATOID ARTHRITIS
     Dosage: UNK UNK, UNKNOWN FREQ.
     Route: 048
     Dates: start: 200711
  2. LOXOPROFEN NA [Concomitant]
     Active Substance: LOXOPROFEN SODIUM
     Indication: RHEUMATOID ARTHRITIS
     Route: 048
     Dates: start: 201702
  3. GLUFAST [Concomitant]
     Active Substance: MITIGLINIDE
     Route: 048
     Dates: start: 20200730, end: 20200820
  4. GLUFAST [Concomitant]
     Active Substance: MITIGLINIDE
     Route: 048
     Dates: start: 20200305, end: 20200729
  5. REBAMIPIDE [Concomitant]
     Active Substance: REBAMIPIDE
     Indication: RHEUMATOID ARTHRITIS
     Route: 048
     Dates: start: 201702
  6. PROGRAF [Suspect]
     Active Substance: TACROLIMUS
     Indication: RHEUMATOID ARTHRITIS
     Dosage: 0.5 MG, ONCE DAILY
     Route: 048
     Dates: start: 202002
  7. GLUFAST [Concomitant]
     Active Substance: MITIGLINIDE
     Indication: TYPE 2 DIABETES MELLITUS
     Route: 048
     Dates: start: 20200205
  8. PROGRAF [Suspect]
     Active Substance: TACROLIMUS
     Route: 048
     Dates: start: 201702
  9. ORENCIA [Suspect]
     Active Substance: ABATACEPT
     Indication: RHEUMATOID ARTHRITIS
     Route: 058
     Dates: start: 20200520

REACTIONS (1)
  - Glucose tolerance impaired [Recovering/Resolving]

NARRATIVE: CASE EVENT DATE: 20200305
